FAERS Safety Report 24565067 (Version 1)
Quarter: 2024Q4

REPORT INFORMATION
  Report Type: Spontaneous
  Country: AU (occurrence: AU)
  Receive Date: 20241030
  Receipt Date: 20241030
  Transmission Date: 20250114
  Serious: Yes (Hospitalization, Other)
  Sender: CSL BEHRING
  Company Number: AU-BEH-2024182790

PATIENT
  Age: 75 Year
  Sex: Male
  Weight: 83 kg

DRUGS (20)
  1. HUMAN IMMUNOGLOBULIN G [Suspect]
     Active Substance: HUMAN IMMUNOGLOBULIN G
     Indication: Hypogammaglobulinaemia
     Dosage: 10 %
     Route: 042
     Dates: start: 20240807
  2. BORTEZOMIB [Suspect]
     Active Substance: BORTEZOMIB
     Indication: Plasma cell myeloma
     Dosage: 2.6 MG
     Route: 058
     Dates: start: 20240503, end: 20240503
  3. BORTEZOMIB [Suspect]
     Active Substance: BORTEZOMIB
     Dosage: 5.2 MG
     Route: 058
     Dates: start: 20240729, end: 20240729
  4. DEXAMETHASONE [Suspect]
     Active Substance: DEXAMETHASONE
     Indication: Plasma cell myeloma
     Dosage: 20 MG
     Route: 048
     Dates: start: 20240503, end: 20240503
  5. DEXAMETHASONE [Suspect]
     Active Substance: DEXAMETHASONE
     Dosage: 20 MG
     Route: 048
     Dates: start: 20240729, end: 20240730
  6. MEZIGDOMIDE [Suspect]
     Active Substance: MEZIGDOMIDE
     Indication: Plasma cell myeloma
     Dosage: 0.3 MG
     Route: 048
     Dates: start: 20240503, end: 20240503
  7. MEZIGDOMIDE [Suspect]
     Active Substance: MEZIGDOMIDE
     Dosage: 1 MG
     Route: 048
     Dates: start: 20240719, end: 20240719
  8. MEZIGDOMIDE [Suspect]
     Active Substance: MEZIGDOMIDE
     Dosage: 1 MG
     Route: 048
     Dates: start: 20240720, end: 20240724
  9. ASPIRIN [Concomitant]
     Active Substance: ASPIRIN
     Indication: Thalamic stroke
     Dosage: 100 MG
     Route: 048
     Dates: start: 20231127
  10. ATOVAQUONE [Concomitant]
     Active Substance: ATOVAQUONE
     Indication: Prophylaxis
     Dosage: 1500 MG
     Route: 048
     Dates: start: 20240503
  11. CALCIUM CARBONATE [Concomitant]
     Active Substance: CALCIUM CARBONATE
     Indication: Prophylaxis
     Dosage: 1500 MG
     Route: 048
     Dates: start: 20240530
  12. CHOLECALCIFEROL [Concomitant]
     Active Substance: CHOLECALCIFEROL
     Indication: Prophylaxis
     Dosage: 25 MICROGRAM
     Route: 048
     Dates: start: 20240530
  13. FAMOTIDINE [Concomitant]
     Active Substance: FAMOTIDINE
     Indication: Prophylaxis
     Dosage: 40 MG
     Route: 048
     Dates: start: 20240621
  14. IRBESARTAN [Concomitant]
     Active Substance: IRBESARTAN
     Indication: Hypertension
     Dosage: 75 MG
     Route: 048
     Dates: start: 2019
  15. LORATADINE [Concomitant]
     Active Substance: LORATADINE
     Indication: Prophylaxis
     Dosage: 20 MG
     Route: 048
     Dates: start: 20231219
  16. NYSTATIN [Concomitant]
     Active Substance: NYSTATIN
     Indication: Prophylaxis
     Dosage: 3 ML
     Route: 002
     Dates: start: 20240804, end: 20240808
  17. SODIUM BICARBONATE [Concomitant]
     Active Substance: SODIUM BICARBONATE
     Indication: Prophylaxis
     Dosage: UNK
     Route: 002
     Dates: start: 20240503
  18. SODIUM CHLORIDE [Concomitant]
     Active Substance: SODIUM CHLORIDE
     Indication: Hypotension
     Dosage: 3000 ML
     Route: 042
     Dates: start: 20240802, end: 20240802
  19. TERBINAFINE [Concomitant]
     Active Substance: TERBINAFINE\TERBINAFINE HYDROCHLORIDE
     Indication: Nail infection
     Dosage: 250 ML
     Route: 048
     Dates: start: 20240608
  20. ZOLEDRONIC ACID [Concomitant]
     Active Substance: ZOLEDRONIC ACID
     Indication: Prophylaxis
     Dosage: 4.5 G
     Route: 042
     Dates: start: 20240530

REACTIONS (5)
  - Pneumonia pneumococcal [Recovered/Resolved]
  - Infusion related reaction [Recovered/Resolved]
  - Gastrooesophageal reflux disease [Unknown]
  - Hypotension [Unknown]
  - Sepsis [Unknown]

NARRATIVE: CASE EVENT DATE: 20240807
